FAERS Safety Report 7956175-0 (Version None)
Quarter: 2011Q4

REPORT INFORMATION
  Report Type: 
  Country: None (occurrence: None)
  Receive Date: 20111118
  Receipt Date: 20111111
  Transmission Date: 20120403
  Serious: Yes (Other)
  Sender: FDA-Public Use
  Company Number: 2011029179

PATIENT
  Age: 50 Year
  Sex: Female
  Weight: 84.369 kg

DRUGS (44)
  1. ASCORBIC ACID [Concomitant]
  2. FLONASE [Concomitant]
  3. DIOVAN [Concomitant]
  4. CALCIUM + D (OYSTER SHELL CALCIUM WITH VITAMIN D) [Concomitant]
  5. VITAMIN B COMPLEX CAP [Concomitant]
  6. HIZENTRA [Suspect]
     Dosage: (2 GM 10 ML VIAL; OVER 1-2 HOURS SUBCUTANEOUS)
     Route: 058
     Dates: start: 20101103
  7. PREDNISONE TAB [Concomitant]
  8. PROAIR (PROCATEROL HYDROCHLORIDE) [Concomitant]
  9. OXYBUTYNIN [Concomitant]
  10. VITAMIN B12 [Concomitant]
  11. PRAVASTATIN [Concomitant]
  12. TESSALON [Concomitant]
  13. VICODIN [Concomitant]
  14. ATARAX [Concomitant]
  15. HIZENTRA [Suspect]
     Dosage: (2 GM 10 ML VIAL SUBCUTANEOUS)
     Route: 058
     Dates: start: 20110719
  16. HIZENTRA [Suspect]
     Dosage: 10 G 1X/WEEK, 2 GM/10 ML VIAL; 900 ML/HR IN 4 SITES FOR A TOTOAL INFUSION TIME OF ~ 1-2  HOURS SUBCU
     Route: 058
     Dates: start: 20101103
  17. FOSAMAX [Concomitant]
  18. MAGNESIUM SULFATE [Concomitant]
  19. OMEPRAZOLE [Concomitant]
  20. GABAPENTIN [Concomitant]
  21. PRENATAL [Concomitant]
  22. RANITIDINE [Concomitant]
  23. THEOPHYLLINE [Concomitant]
  24. B-100 COMPLEX (NICOTINAM. W/PYRIDOXI. HCL/RIBOFL/THIAM. HCL) [Concomitant]
  25. PREMPRO (PROVELLA-14) [Concomitant]
  26. CHLORZOXAZONE [Concomitant]
  27. CELEBREX [Concomitant]
  28. HIZENTRA [Suspect]
     Indication: IMMUNODEFICIENCY COMMON VARIABLE
     Dosage: (10 G 1X/WEEK, 2 GM 10 ML VIAL; 50 ML IN 4 SITES OVER 1 HOUR 17 MINUTES SUBCUTANEOUS)
     Route: 058
     Dates: start: 20101103
  29. HIZENTRA [Suspect]
     Dosage: (10 G 1X/WEEK SUBCUTANEOUS)
     Route: 058
     Dates: start: 20110630
  30. TREXIMET (SUMATRIPTAN) [Concomitant]
  31. IBUPROFEN [Concomitant]
  32. CIPRO [Concomitant]
  33. VITAMIN B12 [Concomitant]
  34. SEROQUEL XR (QUETIAPINE) [Concomitant]
  35. XYZAL [Concomitant]
  36. ALBUTEROL [Concomitant]
  37. PROMETHAZINE [Concomitant]
  38. SINGULAIR [Concomitant]
  39. CELEXA [Concomitant]
  40. FISH OIL [Concomitant]
  41. KLONOPIN [Concomitant]
  42. SYMBICORT [Concomitant]
  43. BACTRIM DS [Concomitant]
  44. HYDROCODONE-APAP (PROCET) [Concomitant]

REACTIONS (6)
  - KIDNEY INFECTION [None]
  - RENAL DISORDER [None]
  - SINUSITIS [None]
  - DYSPNOEA [None]
  - HEADACHE [None]
  - INFUSION RELATED REACTION [None]
